FAERS Safety Report 5009961-3 (Version None)
Quarter: 2006Q2

REPORT INFORMATION
  Report Type: 
  Country: None (occurrence: None)
  Receive Date: 20060524
  Receipt Date: 20060518
  Transmission Date: 20061013
  Serious: Yes (Disabling)
  Sender: FDA-Public Use
  Company Number: DE-BRISTOL-MYERS SQUIBB COMPANY-13381355

PATIENT
  Age: 62 Year
  Sex: Female
  Weight: 90 kg

DRUGS (7)
  1. CYCLOPHOSPHAMIDE [Suspect]
     Indication: BREAST CANCER
     Route: 042
     Dates: start: 20060118, end: 20060307
  2. TAXOL [Suspect]
     Indication: BREAST CANCER
     Route: 042
     Dates: start: 20060321, end: 20060418
  3. CAPECITABINE [Suspect]
     Indication: BREAST CANCER
     Route: 048
     Dates: start: 20060411, end: 20060424
  4. EPIRUBICIN [Suspect]
     Indication: BREAST CANCER
     Route: 042
     Dates: start: 20060118, end: 20060307
  5. DEXAMETHASONE TAB [Concomitant]
     Route: 042
     Dates: start: 20060321, end: 20060425
  6. NEORECORMON [Concomitant]
     Route: 058
     Dates: start: 20060321, end: 20060425
  7. CLEMASTINE [Concomitant]
     Route: 042
     Dates: start: 20060321, end: 20060425

REACTIONS (1)
  - MENTAL DISORDER [None]
